FAERS Safety Report 6251964-5 (Version None)
Quarter: 2009Q2

REPORT INFORMATION
  Report Type: 
  Country: None (occurrence: None)
  Receive Date: 20090630
  Receipt Date: 20090618
  Transmission Date: 20091009
  Serious: Yes (Other)
  Sender: FDA-Public Use
  Company Number: US-ELI_LILLY_AND_COMPANY-US200906005217

PATIENT
  Age: 67 Year
  Sex: Female

DRUGS (4)
  1. CYMBALTA [Suspect]
     Indication: DEPRESSION
     Dosage: 60 MG, UNK
     Dates: start: 20090501, end: 20090608
  2. LIPITOR [Concomitant]
     Dosage: 10 MG, UNK
     Dates: end: 20090608
  3. LISINOPRIL [Concomitant]
     Dosage: 5 MG, UNK
     Dates: end: 20090608
  4. ALCOHOL                            /00002101/ [Concomitant]
     Dates: end: 20090608

REACTIONS (2)
  - ALANINE AMINOTRANSFERASE INCREASED [None]
  - ASPARTATE AMINOTRANSFERASE INCREASED [None]
